FAERS Safety Report 6455775-7 (Version None)
Quarter: 2009Q4

REPORT INFORMATION
  Report Type: 
  Country: None (occurrence: None)
  Receive Date: 20091125
  Receipt Date: 20091112
  Transmission Date: 20100525
  Serious: No
  Sender: FDA-Public Use
  Company Number: US-ABBOTT-09P-163-0607042-00

PATIENT
  Sex: Female
  Weight: 90.8 kg

DRUGS (11)
  1. SIMCOR [Suspect]
     Indication: LOW DENSITY LIPOPROTEIN INCREASED
     Dosage: 500/20MG
     Dates: start: 20091030
  2. SIMCOR [Suspect]
     Indication: HIGH DENSITY LIPOPROTEIN DECREASED
  3. SIMCOR [Suspect]
     Indication: BLOOD TRIGLYCERIDES INCREASED
  4. OMEPRAZOLE [Concomitant]
     Indication: DRUG USE FOR UNKNOWN INDICATION
  5. HYDROXYZINE [Concomitant]
     Indication: DRUG USE FOR UNKNOWN INDICATION
  6. WELLBUTRIN [Concomitant]
     Indication: DRUG USE FOR UNKNOWN INDICATION
  7. PROZAC [Concomitant]
     Indication: DRUG USE FOR UNKNOWN INDICATION
  8. HORMONE REPLACEMENT [Concomitant]
     Indication: DRUG USE FOR UNKNOWN INDICATION
  9. RITALIN [Concomitant]
     Indication: DRUG USE FOR UNKNOWN INDICATION
  10. IBUPROFEN [Concomitant]
     Indication: DRUG USE FOR UNKNOWN INDICATION
  11. ASPIRIN [Concomitant]
     Indication: DRUG USE FOR UNKNOWN INDICATION

REACTIONS (7)
  - ABDOMINAL DISCOMFORT [None]
  - ERYTHEMA [None]
  - MUSCLE SPASMS [None]
  - NAUSEA [None]
  - PRURITUS [None]
  - RASH [None]
  - SWELLING [None]
